FAERS Safety Report 7245172-9 (Version None)
Quarter: 2011Q1

REPORT INFORMATION
  Report Type: 
  Country: None (occurrence: None)
  Receive Date: 20110118
  Receipt Date: 20110103
  Transmission Date: 20110831
  Serious: Yes (Other)
  Sender: FDA-Public Use
  Company Number: 2011-0014

PATIENT
  Age: 70 Year
  Sex: Female

DRUGS (4)
  1. SOMATULINE DEPOT [Suspect]
     Indication: HYPOTHALAMO-PITUITARY DISORDER
     Dosage: (1 IN 1 M)
     Dates: start: 20100402, end: 20100707
  2. LUCEN (ESOMEPRAZOLE) [Concomitant]
  3. REPAGLINIDE [Concomitant]
  4. ATORVASTATIN CALCIUM [Concomitant]

REACTIONS (9)
  - DYSGEUSIA [None]
  - WEIGHT INCREASED [None]
  - THROMBOSIS [None]
  - PRODUCT DEPOSIT [None]
  - PRODUCT SOLUBILITY ABNORMAL [None]
  - LOSS OF CONSCIOUSNESS [None]
  - POLYURIA [None]
  - PARAESTHESIA ORAL [None]
  - CONSTIPATION [None]
